FAERS Safety Report 5167068-9 (Version None)
Quarter: 2006Q4

REPORT INFORMATION
  Report Type: 
  Country: None (occurrence: None)
  Receive Date: 20061207
  Receipt Date: 20061011
  Transmission Date: 20070319
  Serious: Yes (Hospitalization)
  Sender: FDA-Public Use
  Company Number: 2006UW19716

PATIENT
  Age: 762 Month
  Sex: Female
  Weight: 79.4 kg

DRUGS (1)
  1. NEXIUM [Suspect]
     Route: 048

REACTIONS (4)
  - ABDOMINAL DISCOMFORT [None]
  - GASTRITIS [None]
  - INFLAMMATORY BOWEL DISEASE [None]
  - OBSTRUCTION GASTRIC [None]
